FAERS Safety Report 19387185 (Version 2)
Quarter: 2021Q2

REPORT INFORMATION
  Report Type: Report from Study
  Country: GB (occurrence: GB)
  Receive Date: 20210608
  Receipt Date: 20210617
  Transmission Date: 20210717
  Serious: Yes (Hospitalization)
  Sender: FDA-Public Use
  Company Number: NVSC2021GB126853

PATIENT
  Sex: Female

DRUGS (3)
  1. KALYDECO [Concomitant]
     Active Substance: IVACAFTOR
     Indication: PRODUCT USED FOR UNKNOWN INDICATION
     Dosage: UNK
     Route: 065
  2. PULMOZYME [Concomitant]
     Active Substance: DORNASE ALFA
     Indication: PRODUCT USED FOR UNKNOWN INDICATION
     Dosage: UNK
     Route: 065
  3. TOBI PODHALER [Suspect]
     Active Substance: TOBRAMYCIN
     Indication: CYSTIC FIBROSIS
     Dosage: 28 MG, BID (4 CAPSULES TWICE A DAY)
     Route: 055
     Dates: start: 2018

REACTIONS (2)
  - Speech disorder [Unknown]
  - Malaise [Unknown]
